FAERS Safety Report 6087807-2 (Version None)
Quarter: 2009Q1

REPORT INFORMATION
  Report Type: 
  Country: None (occurrence: None)
  Receive Date: 20090223
  Receipt Date: 20090211
  Transmission Date: 20090719
  Serious: Yes (Hospitalization)
  Sender: FDA-Public Use
  Company Number: US-ELI_LILLY_AND_COMPANY-US200902002848

PATIENT
  Age: 48 Year
  Sex: Male

DRUGS (4)
  1. CYMBALTA [Suspect]
     Dosage: 60 MG, UNK
     Route: 048
     Dates: start: 20090108, end: 20090110
  2. INSULIN [Concomitant]
  3. LANTUS [Concomitant]
  4. ASPIRIN [Concomitant]

REACTIONS (1)
  - MENTAL STATUS CHANGES [None]
